FAERS Safety Report 6582258-6 (Version None)
Quarter: 2010Q1

REPORT INFORMATION
  Report Type: 
  Country: None (occurrence: None)
  Receive Date: 20100216
  Receipt Date: 20091029
  Transmission Date: 20100710
  Serious: No
  Sender: FDA-Public Use
  Company Number: A0814418A

PATIENT
  Sex: Female
  Weight: 57 kg

DRUGS (4)
  1. AVAMYS [Suspect]
     Indication: NASAL CONGESTION
     Dosage: 2PUFF TWICE PER DAY
     Route: 065
  2. DIGOXIN [Concomitant]
     Dates: start: 20091005
  3. ENALAPRIL MALEATE [Concomitant]
     Dates: start: 20091005
  4. COMBIRON [Concomitant]
     Dates: start: 20091005

REACTIONS (1)
  - CHROMATURIA [None]
